FAERS Safety Report 9173963 (Version 2)
Quarter: 2013Q2

REPORT INFORMATION
  Report Type: Spontaneous
  Country: IT (occurrence: IT)
  Receive Date: 20130320
  Receipt Date: 20130531
  Transmission Date: 20140414
  Serious: Yes (Hospitalization)
  Sender: FDA-Public Use
  Company Number: IT-SANOFI-AVENTIS-2013SA024679

PATIENT
  Age: 72 Year
  Sex: Male

DRUGS (6)
  1. PLAVIX [Suspect]
     Indication: ACUTE MYOCARDIAL INFARCTION
     Route: 048
     Dates: start: 20100101, end: 20130214
  2. FUROSEMIDE [Suspect]
     Indication: HYPERTENSION
     Route: 048
     Dates: start: 20100101, end: 20130214
  3. RAMIPRIL [Suspect]
     Indication: HYPERTENSION
     Route: 048
     Dates: start: 20100101, end: 20130214
  4. SOTALOL [Suspect]
     Indication: HYPERTENSION
     Dosage: DOSE:1 UNIT(S)
     Route: 048
     Dates: start: 20100101, end: 20130214
  5. CARDIOASPIRIN [Suspect]
     Indication: ACUTE MYOCARDIAL INFARCTION
     Route: 048
     Dates: start: 20110201, end: 20130214
  6. TORVAST [Concomitant]
     Indication: HYPERCHOLESTEROLAEMIA
     Dosage: DOSE:1 UNIT(S)
     Route: 048
     Dates: start: 20100101, end: 20130214

REACTIONS (2)
  - Presyncope [Unknown]
  - Drug interaction [Unknown]
